FAERS Safety Report 5682871-4 (Version None)
Quarter: 2008Q1

REPORT INFORMATION
  Report Type: 
  Country: None (occurrence: None)
  Receive Date: 20080327
  Receipt Date: 20080321
  Transmission Date: 20080703
  Serious: Yes (Other)
  Sender: FDA-Public Use
  Company Number: B0513924A

PATIENT
  Age: 20 Year
  Sex: Male

DRUGS (3)
  1. SAWACILLIN [Suspect]
     Indication: PHARYNGITIS
     Dosage: 1000MG PER DAY
     Route: 048
     Dates: start: 20080222, end: 20080225
  2. CHINESE HERBAL MEDICINE [Concomitant]
     Dosage: 7.5G PER DAY
     Route: 048
     Dates: start: 20080222, end: 20080225
  3. POVIDONE IODINE [Concomitant]
     Dosage: 6ML PER DAY
     Route: 065
     Dates: start: 20080222, end: 20080225

REACTIONS (5)
  - GLOSSODYNIA [None]
  - LIP SWELLING [None]
  - ORAL PAIN [None]
  - STOMATITIS [None]
  - TONGUE DISCOLOURATION [None]
